FAERS Safety Report 18121169 (Version 2)
Quarter: 2020Q3

REPORT INFORMATION
  Report Type: Report from Study
  Country: PT (occurrence: PT)
  Receive Date: 20200806
  Receipt Date: 20200908
  Transmission Date: 20201103
  Serious: Yes (Other)
  Sender: FDA-Public Use
  Company Number: PT-NEUROCRINE BIOSCIENCES INC.-2020NBI02760

PATIENT
  Age: 59 Year
  Sex: Male

DRUGS (3)
  1. REQUIP [Suspect]
     Active Substance: ROPINIROLE HYDROCHLORIDE
     Indication: ON AND OFF PHENOMENON
     Dosage: UNKNOWN
     Route: 065
  2. SINEMET [Suspect]
     Active Substance: CARBIDOPA\LEVODOPA
     Indication: ON AND OFF PHENOMENON
     Dosage: LEVODOPA DOSE: 1200 (NO UNIT PROVIDED), UNKNOWN
     Route: 065
  3. ONGENTYS [Suspect]
     Active Substance: OPICAPONE
     Indication: ON AND OFF PHENOMENON
     Dosage: UNKNOWN
     Route: 065

REACTIONS (16)
  - Bradykinesia [Unknown]
  - Freezing phenomenon [Unknown]
  - Balance disorder [Unknown]
  - Sleep disorder [Unknown]
  - Depression [Unknown]
  - Muscle rigidity [Unknown]
  - Dysphagia [Unknown]
  - Dysphonia [Unknown]
  - On and off phenomenon [Unknown]
  - Saliva altered [Unknown]
  - Therapeutic response shortened [Unknown]
  - Gait disturbance [Unknown]
  - Reduced facial expression [Unknown]
  - Psychotic disorder [Unknown]
  - Dystonia [Unknown]
  - Tremor [Unknown]
